FAERS Safety Report 9033608 (Version 1)
Quarter: 2013Q1

REPORT INFORMATION
  Report Type: Spontaneous
  Country: IT (occurrence: IT)
  Receive Date: 20130128
  Receipt Date: 20130128
  Transmission Date: 20140127
  Serious: Yes (Hospitalization)
  Sender: FDA-Public Use
  Company Number: IT-TEVA-382513ISR

PATIENT
  Age: 49 Year
  Sex: Female

DRUGS (2)
  1. DICLOFENAC SODICO [Suspect]
     Dosage: 4 DOSAGE FORMS DAILY;
     Route: 048
     Dates: start: 20120614, end: 20120614
  2. TAVOR [Suspect]
     Dosage: 35 MILLIGRAM DAILY;
     Route: 048
     Dates: start: 20120614, end: 20120614

REACTIONS (3)
  - Drug abuse [Recovering/Resolving]
  - Alanine aminotransferase increased [Recovering/Resolving]
  - Blood pressure increased [Recovering/Resolving]
